FAERS Safety Report 4681059-3 (Version None)
Quarter: 2005Q2

REPORT INFORMATION
  Report Type: 
  Country: None (occurrence: None)
  Receive Date: 20050603
  Receipt Date: 20050426
  Transmission Date: 20051028
  Serious: Yes (Life-Threatening, Hospitalization)
  Sender: FDA-Public Use
  Company Number: JP-ABBOTT-05P-087-0298540-00

PATIENT
  Age: 74 Year
  Sex: Male

DRUGS (8)
  1. TRICOR AND LIPANTIL [Suspect]
     Indication: HYPERLIPIDAEMIA
     Route: 048
     Dates: start: 20050414, end: 20050415
  2. TRICOR AND LIPANTIL [Suspect]
     Dates: start: 20011127, end: 20050414
  3. NILVADIPINE [Concomitant]
     Indication: DRUG USE FOR UNKNOWN INDICATION
     Dates: start: 19991014, end: 20050415
  4. KALLIDINOGENASE [Concomitant]
     Indication: DRUG USE FOR UNKNOWN INDICATION
     Dosage: UI
     Dates: start: 20000608, end: 20050415
  5. OXYBUTYNIN HYDROCHLORIDE [Concomitant]
     Indication: DRUG USE FOR UNKNOWN INDICATION
     Dates: start: 20021002, end: 20050415
  6. POLYCARBOPHIL CALCIUM [Concomitant]
     Indication: DRUG USE FOR UNKNOWN INDICATION
     Dates: start: 20021113, end: 20050415
  7. TELMISARTAN [Concomitant]
     Indication: DRUG USE FOR UNKNOWN INDICATION
     Dates: start: 20040617, end: 20050415
  8. NIZATIDINE [Concomitant]
     Indication: DRUG USE FOR UNKNOWN INDICATION
     Dates: start: 20050407, end: 20050415

REACTIONS (2)
  - CONVULSION [None]
  - QUADRIPLEGIA [None]
